FAERS Safety Report 5236060-8 (Version None)
Quarter: 2007Q1

REPORT INFORMATION
  Report Type: 
  Country: None (occurrence: None)
  Receive Date: 20061208
  Receipt Date: 20060113
  Transmission Date: 20070707
  Serious: Yes (Other)
  Sender: FDA-Public Use
  Company Number: 2006UW00710

PATIENT
  Age: 53 Year
  Sex: Female
  Weight: 77.11 kg

DRUGS (6)
  1. CRESTOR [Suspect]
     Indication: BLOOD CHOLESTEROL INCREASED
     Dosage: 10 MG QD PO
     Route: 048
     Dates: start: 20051201
  2. ATENOLOL [Concomitant]
  3. ESTRACE [Concomitant]
  4. RANITIDINE [Concomitant]
  5. LEXAPRO [Concomitant]
  6. NEURONTIN [Concomitant]

REACTIONS (1)
  - WEIGHT INCREASED [None]
